FAERS Safety Report 4784902-2 (Version None)
Quarter: 2005Q3

REPORT INFORMATION
  Report Type: 
  Country: None (occurrence: None)
  Receive Date: 20050929
  Receipt Date: 20050929
  Transmission Date: 20060218
  Serious: No
  Sender: FDA-Public Use
  Company Number: None

PATIENT
  Age: 53 Year
  Sex: Female
  Weight: 53.5244 kg

DRUGS (4)
  1. AREDIA [Suspect]
     Indication: BONE LESION
     Dosage: 60MG   IV  Q4WEEK
     Route: 042
     Dates: start: 20040329, end: 20050811
  2. AREDIA [Suspect]
     Indication: MULTIPLE MYELOMA
     Dosage: 60MG   IV  Q4WEEK
     Route: 042
     Dates: start: 20040329, end: 20050811
  3. THALIDOMIDE [Concomitant]
  4. DECADRON [Concomitant]

REACTIONS (2)
  - JAW DISORDER [None]
  - OSTEONECROSIS [None]
